FAERS Safety Report 7627708-9 (Version None)
Quarter: 2011Q3

REPORT INFORMATION
  Report Type: 
  Country: None (occurrence: None)
  Receive Date: 20110721
  Receipt Date: 20110715
  Transmission Date: 20111222
  Serious: Yes (Other)
  Sender: FDA-Public Use
  Company Number: US-PFIZER INC-2011160989

PATIENT
  Sex: Female

DRUGS (8)
  1. QUETIAPINE FUMARATE [Suspect]
  2. CARBAMAZEPINE [Suspect]
  3. DESIPRAMINE HYDROCHLORIDE [Suspect]
  4. CHLORPROMAZINE [Suspect]
  5. TRAZODONE HCL [Suspect]
  6. SERTRALINE HYDROCHLORIDE [Suspect]
  7. PHENYTOIN [Suspect]
  8. HALOPERIDOL [Suspect]

REACTIONS (1)
  - ANAPHYLACTIC REACTION [None]
